FAERS Safety Report 24117234 (Version 1)
Quarter: 2024Q3

REPORT INFORMATION
  Report Type: Report from Study
  Country: US (occurrence: None)
  Receive Date: 20240722
  Receipt Date: 20240722
  Transmission Date: 20241016
  Serious: Yes (Other)
  Sender: ASTRAZENECA
  Company Number: 2023A108582

PATIENT
  Sex: Female

DRUGS (1)
  1. CALQUENCE [Suspect]
     Active Substance: ACALABRUTINIB
     Route: 048

REACTIONS (8)
  - Spinal compression fracture [Unknown]
  - Nervousness [Unknown]
  - Decreased appetite [Unknown]
  - Crying [Unknown]
  - Dysphonia [Unknown]
  - Blood pressure decreased [Unknown]
  - Fatigue [Unknown]
  - Nausea [Unknown]
